FAERS Safety Report 5174601-X (Version None)
Quarter: 2006Q4

REPORT INFORMATION
  Report Type: 
  Country: None (occurrence: None)
  Receive Date: 20061206
  Receipt Date: 20061120
  Transmission Date: 20070319
  Serious: Yes (Death)
  Sender: FDA-Public Use
  Company Number: 37000

PATIENT

DRUGS (1)
  1. FLUORESCITE [Suspect]
     Dosage: IV
     Route: 042

REACTIONS (2)
  - ANAPHYLACTIC SHOCK [None]
  - HYPOPNOEA [None]
